FAERS Safety Report 8074677-6 (Version None)
Quarter: 2012Q1

REPORT INFORMATION
  Report Type: 
  Country: None (occurrence: None)
  Receive Date: 20120126
  Receipt Date: 20120116
  Transmission Date: 20120608
  Serious: Yes (Hospitalization)
  Sender: FDA-Public Use
  Company Number: JP-ABBOTT-12P-087-0897995-00

PATIENT
  Age: 77 Year
  Sex: Female

DRUGS (4)
  1. BIPERIDEN HYDROCHLORIDE TAB [Suspect]
     Indication: PRODUCT USED FOR UNKNOWN INDICATION
     Dosage: (3 MILLIGRAMS)
     Route: 048
     Dates: start: 20111101, end: 20111225
  2. HYPNOTICS AND SEDATIVES [Concomitant]
     Indication: PRODUCT USED FOR UNKNOWN INDICATION
  3. ANTIHYPERTENSIVES [Concomitant]
     Indication: PRODUCT USED FOR UNKNOWN INDICATION
  4. LEXAPRO [Suspect]
     Indication: DEPRESSION
     Dosage: (10 MILLIGRAMS)
     Dates: start: 20111221, end: 20111225

REACTIONS (4)
  - URINARY RETENTION [None]
  - HYPONATRAEMIA [None]
  - CONFUSIONAL STATE [None]
  - HALLUCINATION, VISUAL [None]
